FAERS Safety Report 21330945 (Version 12)
Quarter: 2024Q4

REPORT INFORMATION
  Report Type: Report from Study
  Country: US (occurrence: US)
  Receive Date: 20220914
  Receipt Date: 20241016
  Transmission Date: 20250115
  Serious: No
  Sender: NOVARTIS
  Company Number: US-002147023-NVSC2022US206138

PATIENT
  Age: 80 Year
  Sex: Female

DRUGS (5)
  1. LEQVIO [Suspect]
     Active Substance: INCLISIRAN SODIUM
     Indication: Low density lipoprotein increased
     Dosage: UNK
     Route: 058
     Dates: start: 20220824
  2. LEQVIO [Suspect]
     Active Substance: INCLISIRAN SODIUM
     Indication: Type IIa hyperlipidaemia
     Dosage: UNK
     Route: 065
     Dates: start: 20220828
  3. LEQVIO [Suspect]
     Active Substance: INCLISIRAN SODIUM
     Dosage: UNK
     Route: 065
     Dates: start: 20221130
  4. ZETIA [Concomitant]
     Active Substance: EZETIMIBE
     Indication: Product used for unknown indication
     Dosage: 10 MG, QD
     Route: 065
  5. ASPIRIN [Concomitant]
     Active Substance: ASPIRIN
     Indication: Product used for unknown indication
     Dosage: LOW DOSE
     Route: 065

REACTIONS (31)
  - Arteriosclerosis [Not Recovered/Not Resolved]
  - Fear of disease [Unknown]
  - Wound [Unknown]
  - Paraesthesia [Unknown]
  - Nausea [Unknown]
  - Abdominal pain upper [Unknown]
  - Anxiety [Unknown]
  - Muscle spasms [Unknown]
  - Myalgia [Recovered/Resolved]
  - Malaise [Unknown]
  - Constipation [Unknown]
  - Pollakiuria [Unknown]
  - Injection site bruising [Unknown]
  - Dizziness [Unknown]
  - Back pain [Unknown]
  - Pain in extremity [Unknown]
  - Injection site pain [Unknown]
  - Low density lipoprotein increased [Recovering/Resolving]
  - High density lipoprotein increased [Unknown]
  - Non-high-density lipoprotein cholesterol increased [Unknown]
  - Alanine aminotransferase increased [Unknown]
  - Lipoprotein (a) decreased [Unknown]
  - Headache [Recovered/Resolved]
  - Abdominal discomfort [Recovered/Resolved]
  - Blood cholesterol decreased [Not Recovered/Not Resolved]
  - Unevaluable event [Not Recovered/Not Resolved]
  - Blood cholesterol increased [Not Recovered/Not Resolved]
  - Abdominal rigidity [Recovering/Resolving]
  - Musculoskeletal chest pain [Recovered/Resolved]
  - Arterial occlusive disease [Unknown]
  - Pain [Unknown]

NARRATIVE: CASE EVENT DATE: 20220824
